FAERS Safety Report 20462095 (Version 3)
Quarter: 2023Q2

REPORT INFORMATION
  Report Type: Spontaneous
  Country: US (occurrence: US)
  Receive Date: 20220211
  Receipt Date: 20230627
  Transmission Date: 20230721
  Serious: Yes (Other)
  Sender: FDA-Public Use
  Company Number: US-GILEAD-2022-0569568

PATIENT
  Age: 55 Year
  Sex: Female
  Weight: 54.422 kg

DRUGS (15)
  1. ATRIPLA [Suspect]
     Active Substance: EFAVIRENZ\EMTRICITABINE\TENOFOVIR DISOPROXIL FUMARATE
     Indication: HIV infection
     Dosage: UNK
     Route: 048
     Dates: start: 2005, end: 201507
  2. ATRIPLA [Suspect]
     Active Substance: EFAVIRENZ\EMTRICITABINE\TENOFOVIR DISOPROXIL FUMARATE
     Dosage: UNK
     Route: 048
     Dates: start: 2012
  3. ATRIPLA [Suspect]
     Active Substance: EFAVIRENZ\EMTRICITABINE\TENOFOVIR DISOPROXIL FUMARATE
     Dosage: UNK
     Route: 048
     Dates: start: 2005, end: 201603
  4. TRUVADA [Suspect]
     Active Substance: EMTRICITABINE\TENOFOVIR DISOPROXIL FUMARATE
     Indication: HIV infection
     Route: 048
  5. CRIXIVAN [Concomitant]
     Active Substance: INDINAVIR SULFATE
  6. TRIUMEQ [Concomitant]
     Active Substance: ABACAVIR SULFATE\DOLUTEGRAVIR SODIUM\LAMIVUDINE
  7. ACYCLOVIR [Concomitant]
     Active Substance: ACYCLOVIR
  8. ALPRAZOLAM [Concomitant]
     Active Substance: ALPRAZOLAM
  9. CARISOPRODOL [Concomitant]
     Active Substance: CARISOPRODOL
  10. HYDROCODONE [Concomitant]
     Active Substance: HYDROCODONE
  11. ACETAMINOPHEN [Concomitant]
     Active Substance: ACETAMINOPHEN
  12. SODIUM CHLORIDE [Concomitant]
     Active Substance: SODIUM CHLORIDE
  13. TRAMADOL [Concomitant]
     Active Substance: TRAMADOL
  14. TRIAMCINOLONE [Concomitant]
     Active Substance: TRIAMCINOLONE
  15. GABAPENTIN [Concomitant]
     Active Substance: GABAPENTIN
     Dosage: UNK

REACTIONS (16)
  - Osteoporosis [Not Recovered/Not Resolved]
  - Chronic kidney disease [Not Recovered/Not Resolved]
  - Renal failure [Not Recovered/Not Resolved]
  - Renal impairment [Unknown]
  - Back pain [Not Recovered/Not Resolved]
  - Bone demineralisation [Unknown]
  - Pain [Not Recovered/Not Resolved]
  - Emotional distress [Not Recovered/Not Resolved]
  - Anxiety [Not Recovered/Not Resolved]
  - Anhedonia [Not Recovered/Not Resolved]
  - Renal cyst [Unknown]
  - Bone loss [Unknown]
  - Gait disturbance [Not Recovered/Not Resolved]
  - Dysstasia [Not Recovered/Not Resolved]
  - Depression [Unknown]
  - Osteopenia [Not Recovered/Not Resolved]

NARRATIVE: CASE EVENT DATE: 20121201
